FAERS Safety Report 8702909 (Version 2)
Quarter: 2012Q4

REPORT INFORMATION
  Report Type: 
  Country: US (occurrence: US)
  Receive Date: 20120803
  Receipt Date: 20121107
  Transmission Date: 20130627
  Serious: Yes (Hospitalization)
  Sender: FDA-Public Use
  Company Number: US-ELI_LILLY_AND_COMPANY-US201207008485

PATIENT
  Age: 54 Year
  Sex: Female

DRUGS (13)
  1. HUMALOG 25% LISPRO, 75% NPL [Suspect]
     Indication: DIABETES MELLITUS
     Dosage: 16 u, each morning
  2. HUMALOG 25% LISPRO, 75% NPL [Suspect]
     Dosage: 6 u, each evening
  3. ALBUTEROL [Concomitant]
     Dosage: 2 DF, qid
     Route: 055
  4. AMLODIPINE [Concomitant]
     Dosage: 10 mg, qd
     Route: 048
  5. CEPHALEXIN [Concomitant]
     Dosage: 500 mg, qid
     Route: 048
  6. CITALOPRAM [Concomitant]
     Dosage: 40 mg, qd
     Route: 048
  7. FUROSEMIDE [Concomitant]
     Dosage: 20 mg, qd
     Route: 048
  8. LOSARTAN [Concomitant]
     Dosage: 50 mg, qd
     Route: 048
  9. LOVASTATIN [Concomitant]
     Dosage: 20 mg, qd
     Route: 048
  10. MELOXICAM [Concomitant]
     Dosage: 15 mg, qd
     Route: 048
  11. METAXALONE [Concomitant]
     Dosage: UNK, every 8 hrs
  12. OXYGEN [Concomitant]
     Dosage: 1 l, UNK
  13. PREGABALIN [Concomitant]
     Dosage: 100 mg, tid
     Route: 048

REACTIONS (3)
  - Blood glucose increased [Recovered/Resolved]
  - Blood glucose increased [Not Recovered/Not Resolved]
  - Confusional state [Unknown]
